FAERS Safety Report 16426442 (Version 1)
Quarter: 2019Q2

REPORT INFORMATION
  Report Type: Spontaneous
  Country: US (occurrence: US)
  Receive Date: 20190507
  Receipt Date: 20190507
  Transmission Date: 20190711
  Serious: Yes (Other)
  Sender: FDA-Public Use
  Company Number: None

PATIENT
  Age: 50 Year
  Sex: Female
  Weight: 89.36 kg

DRUGS (1)
  1. MESALAMINE 1.2 GRAMS [Suspect]
     Active Substance: MESALAMINE
     Indication: PROCTITIS ULCERATIVE
     Dosage: ?          OTHER FREQUENCY:4 TABS;?
     Route: 048
     Dates: start: 20170825, end: 20171109

REACTIONS (2)
  - Colitis ulcerative [None]
  - Product substitution issue [None]

NARRATIVE: CASE EVENT DATE: 20171109
